FAERS Safety Report 6903401-2 (Version None)
Quarter: 2010Q3

REPORT INFORMATION
  Report Type: 
  Country: None (occurrence: None)
  Receive Date: 20100803
  Receipt Date: 20080926
  Transmission Date: 20110219
  Serious: No
  Sender: FDA-Public Use
  Company Number: US-PFIZER INC-2008082313

PATIENT
  Sex: Female

DRUGS (1)
  1. LYRICA [Suspect]
     Indication: FIBROMYALGIA
     Route: 048
     Dates: start: 20080401

REACTIONS (5)
  - FEELING ABNORMAL [None]
  - HOT FLUSH [None]
  - NEUROPATHY PERIPHERAL [None]
  - PAIN [None]
  - WITHDRAWAL SYNDROME [None]
